FAERS Safety Report 5166731-3 (Version None)
Quarter: 2006Q4

REPORT INFORMATION
  Report Type: 
  Country: None (occurrence: None)
  Receive Date: 20061207
  Receipt Date: 20061123
  Transmission Date: 20070319
  Serious: Yes (Hospitalization)
  Sender: FDA-Public Use
  Company Number: IT-BRISTOL-MYERS SQUIBB COMPANY-13597398

PATIENT
  Age: 72 Year
  Sex: Female

DRUGS (10)
  1. TRITTICO [Suspect]
     Indication: DEPRESSION
     Dosage: ORAL DROPS 25MG/ML
     Route: 048
     Dates: start: 20060513, end: 20060628
  2. ELOPRAM [Suspect]
     Indication: DEPRESSION
     Route: 048
     Dates: start: 20060513, end: 20060628
  3. ACTOS [Concomitant]
     Dates: start: 20060502, end: 20060627
  4. TENORMIN [Concomitant]
  5. XANAX [Concomitant]
  6. ASPIRIN [Concomitant]
  7. INEGY [Concomitant]
  8. ESKIM [Concomitant]
  9. ENAPREN [Concomitant]
  10. SPORANOX [Concomitant]
     Dates: start: 20060612, end: 20060627

REACTIONS (8)
  - ACUTE CORONARY SYNDROME [None]
  - ACUTE PULMONARY OEDEMA [None]
  - DILATATION ATRIAL [None]
  - ELECTROCARDIOGRAM QT PROLONGED [None]
  - ELECTROCARDIOGRAM ST SEGMENT DEPRESSION [None]
  - SINUS BRADYCARDIA [None]
  - VENTRICULAR HYPERTROPHY [None]
  - VENTRICULAR HYPOKINESIA [None]
